FAERS Safety Report 6284875-X (Version None)
Quarter: 2009Q3

REPORT INFORMATION
  Report Type: 
  Country: None (occurrence: None)
  Receive Date: 20090727
  Receipt Date: 20090715
  Transmission Date: 20100115
  Serious: Yes (Hospitalization)
  Sender: FDA-Public Use
  Company Number: B0583653A

PATIENT
  Age: 27 Year
  Sex: Female

DRUGS (7)
  1. FLOLAN [Suspect]
     Route: 042
     Dates: start: 19991201
  2. REMODULIN [Suspect]
     Route: 058
     Dates: start: 20090301, end: 20090301
  3. VENTAVIS [Suspect]
     Route: 055
     Dates: start: 20040801, end: 20040901
  4. ACENOCOUMAROL [Concomitant]
     Dates: start: 19990801, end: 20060101
  5. OXYGEN [Concomitant]
     Dosage: 2LM PER DAY
     Route: 055
     Dates: start: 19990801
  6. TRACLEER [Concomitant]
     Dosage: 250MG PER DAY
     Route: 048
     Dates: start: 20010401
  7. VIAGRA [Concomitant]
     Dosage: 75MG PER DAY
     Route: 048
     Dates: start: 20040801

REACTIONS (6)
  - ATRIAL SEPTAL DEFECT [None]
  - CATHETER SITE INFECTION [None]
  - GENERAL PHYSICAL HEALTH DETERIORATION [None]
  - HAEMOPTYSIS [None]
  - PARADOXICAL EMBOLISM [None]
  - TRANSIENT ISCHAEMIC ATTACK [None]
